FAERS Safety Report 5695371-2 (Version None)
Quarter: 2008Q2

REPORT INFORMATION
  Report Type: 
  Country: None (occurrence: None)
  Receive Date: 20080403
  Receipt Date: 20080328
  Transmission Date: 20081010
  Serious: Yes (Other)
  Sender: FDA-Public Use
  Company Number: 08H-163-0313971-00

PATIENT
  Age: 41 Year
  Sex: Female
  Weight: 165 kg

DRUGS (13)
  1. DEXMEDETOMIDINE INJECTION (DEXMEDETOMIDINE HYDROCHLORIDE) (DEXMEDETOMI [Suspect]
     Indication: MAINTENANCE OF ANAESTHESIA
     Dosage: 124 MCG, ONCE, INTRAVENOUS BOLUS; 0.4 MCG/KG/HR, INFUSION; 0.7 MCG/KG/HR, INFUSION
     Route: 040
  2. FENTANYL CITRATE [Suspect]
     Indication: INDUCTION OF ANAESTHESIA
     Dosage: 5 MCG/KG,
  3. SUCCINYLCHOLINE CHLORIDE [Suspect]
     Indication: ENDOTRACHEAL INTUBATION
     Dosage: 200 MG,
  4. DROPERIDOL [Suspect]
     Indication: PROPHYLAXIS OF NAUSEA AND VOMITING
     Dosage: 0.625 MG, INTRAVENOUS
     Route: 042
  5. NEOSTIGMINE METHYLSULFATE INJECTION (NEOSTIGMINE) (NEOSTIGMINE) [Suspect]
     Indication: NEUROMUSCULAR BLOCKADE REVERSAL
     Dosage: 4 MG,
  6. DESFLURANE (DESFLURANE) [Suspect]
     Indication: INDUCTION OF ANAESTHESIA
     Dosage: INHALATION, INHALATION
     Route: 055
  7. DOLASETRON (DOLASETRON) [Suspect]
     Indication: PROPHYLAXIS OF NAUSEA AND VOMITING
  8. PROPOFOL [Concomitant]
  9. LIDOCAINE [Concomitant]
  10. VECURONIUM (VECURONIUM) [Concomitant]
  11. GLYCOPYRROLATE [Concomitant]
  12. 60% NITROUS OXIDE (NITROUS OXIDE) [Concomitant]
  13. FUROSEMIDE [Concomitant]

REACTIONS (4)
  - ATRIOVENTRICULAR BLOCK SECOND DEGREE [None]
  - ELECTROCARDIOGRAM PR PROLONGATION [None]
  - ELECTROCARDIOGRAM QT PROLONGED [None]
  - POTENTIATING DRUG INTERACTION [None]
